FAERS Safety Report 7387584-9 (Version None)
Quarter: 2011Q1

REPORT INFORMATION
  Report Type: 
  Country: None (occurrence: None)
  Receive Date: 20110331
  Receipt Date: 20110329
  Transmission Date: 20110831
  Serious: Yes (Life-Threatening, Hospitalization)
  Sender: FDA-Public Use
  Company Number: CH-PFIZER INC-2011062784

PATIENT
  Age: 85 Year
  Sex: Male
  Weight: 82 kg

DRUGS (10)
  1. HALDOL [Concomitant]
     Dosage: 0.5 MG, AS NEEDED
     Dates: start: 20110227
  2. SOLU-MEDROL [Suspect]
     Dosage: 125 MG, 1X/DAY
     Route: 040
     Dates: start: 20110304
  3. IPILIMUMAB [Suspect]
     Indication: MALIGNANT MELANOMA
     Dosage: 3 MG/KG, CYCLIC
     Route: 041
     Dates: start: 20101209, end: 20110210
  4. DISTRANEURIN [Concomitant]
     Dosage: 300 MG, AS NEEDED
     Dates: start: 20110228
  5. SORTIS [Concomitant]
     Dosage: 10 MG, 1X/DAY
     Route: 048
  6. DORMICUM TABLET ^ROCHE^ [Concomitant]
     Dosage: 75 MG, 1X/DAY
  7. AMOXICILLIN AND CLAVULANATE POTASSIUM [Concomitant]
     Dosage: 1200 MG, 3X/DAY
     Route: 040
     Dates: start: 20110227, end: 20110303
  8. SOLU-MEDROL [Suspect]
     Dosage: 62.5 MG, DAILY
     Dates: start: 20110311
  9. DAFALGAN [Concomitant]
     Dosage: 1 G, 4X/DAY
     Route: 048
  10. NOVALGIN [Concomitant]
     Dosage: 500 MG, AS NEEDED
     Dates: start: 20110227

REACTIONS (8)
  - CONFUSIONAL STATE [None]
  - NEUTROPENIA [None]
  - DISSEMINATED INTRAVASCULAR COAGULATION [None]
  - OCULAR ICTERUS [None]
  - LYMPHOPENIA [None]
  - LIVER INJURY [None]
  - THROMBOCYTOPENIA [None]
  - BLOOD BILIRUBIN INCREASED [None]
